FAERS Safety Report 19056984 (Version 4)
Quarter: 2021Q2

REPORT INFORMATION
  Report Type: Report from Study
  Country: US (occurrence: US)
  Receive Date: 20210325
  Receipt Date: 20210526
  Transmission Date: 20210717
  Serious: Yes (Other)
  Sender: FDA-Public Use
  Company Number: US-GILEAD-2021-0518534

PATIENT
  Age: 49 Year
  Sex: Female

DRUGS (15)
  1. WARFARIN [Concomitant]
     Active Substance: WARFARIN
  2. OPSUMIT [Concomitant]
     Active Substance: MACITENTAN
  3. ATORVASTATIN [Concomitant]
     Active Substance: ATORVASTATIN
  4. DULERA [Concomitant]
     Active Substance: FORMOTEROL FUMARATE DIHYDRATE\MOMETASONE FUROATE
  5. EMGALITY [Concomitant]
     Active Substance: GALCANEZUMAB-GNLM
  6. ADVAIR HFA [Concomitant]
     Active Substance: FLUTICASONE PROPIONATE\SALMETEROL XINAFOATE
  7. FUROSEMIDE. [Concomitant]
     Active Substance: FUROSEMIDE
  8. TRELEGY ELLIPTA [Concomitant]
     Active Substance: FLUTICASONE FUROATE\UMECLIDINIUM BROMIDE\VILANTEROL TRIFENATATE
  9. LAMOTRIGINE. [Concomitant]
     Active Substance: LAMOTRIGINE
  10. SYMBICORT [Concomitant]
     Active Substance: BUDESONIDE\FORMOTEROL FUMARATE DIHYDRATE
  11. SILDENAFIL. [Concomitant]
     Active Substance: SILDENAFIL
  12. METOPROLOL. [Concomitant]
     Active Substance: METOPROLOL
  13. AMITRIPTYLINE [Concomitant]
     Active Substance: AMITRIPTYLINE
  14. AMBRISENTAN [Suspect]
     Active Substance: AMBRISENTAN
     Indication: PULMONARY HYPERTENSION
     Dosage: 10 MG, QD
     Route: 065
  15. AMLODIPINE [Concomitant]
     Active Substance: AMLODIPINE BESYLATE

REACTIONS (11)
  - Depression [Not Recovered/Not Resolved]
  - Somnolence [Not Recovered/Not Resolved]
  - Fatigue [Not Recovered/Not Resolved]
  - Cardiac disorder [Not Recovered/Not Resolved]
  - Dyspnoea exertional [Not Recovered/Not Resolved]
  - Productive cough [Not Recovered/Not Resolved]
  - Wheezing [Unknown]
  - Oxygen saturation decreased [Recovered/Resolved]
  - Drug ineffective [Not Recovered/Not Resolved]
  - Sluggishness [Not Recovered/Not Resolved]
  - Chronic obstructive pulmonary disease [Not Recovered/Not Resolved]
